FAERS Safety Report 14016522 (Version 2)
Quarter: 2018Q3

REPORT INFORMATION
  Report Type: Report from Study
  Country: US (occurrence: US)
  Receive Date: 20170927
  Receipt Date: 20180716
  Transmission Date: 20181010
  Serious: Yes (Hospitalization, Disabling, Other)
  Sender: FDA-Public Use
  Company Number: US-SA-2017SA148433

PATIENT
  Age: 56 Year
  Sex: Female

DRUGS (1)
  1. LEMTRADA [Suspect]
     Active Substance: ALEMTUZUMAB
     Indication: MULTIPLE SCLEROSIS
     Dosage: 12 MG,QD
     Route: 041
     Dates: start: 20170710, end: 20170714

REACTIONS (13)
  - Multiple sclerosis relapse [Not Recovered/Not Resolved]
  - Pneumonia [Not Recovered/Not Resolved]
  - Vein disorder [Recovered/Resolved]
  - Asthenia [Not Recovered/Not Resolved]
  - Urinary tract infection [Recovered/Resolved]
  - Gallbladder disorder [Not Recovered/Not Resolved]
  - Muscular weakness [Not Recovered/Not Resolved]
  - Clostridium difficile infection [Recovered/Resolved]
  - Abdominal pain [Recovered/Resolved]
  - Pyrexia [Recovered/Resolved]
  - Pain [Unknown]
  - Malaise [Not Recovered/Not Resolved]
  - Fall [Unknown]

NARRATIVE: CASE EVENT DATE: 20170807
